FAERS Safety Report 14378148 (Version 6)
Quarter: 2019Q2

REPORT INFORMATION
  Report Type: Spontaneous
  Country: US (occurrence: US)
  Receive Date: 20180111
  Receipt Date: 20190617
  Transmission Date: 20190711
  Serious: No
  Sender: FDA-Public Use
  Company Number: US-PFIZER INC-2018009722

PATIENT
  Age: 74 Year
  Sex: Female

DRUGS (1)
  1. IBRANCE [Suspect]
     Active Substance: PALBOCICLIB
     Indication: BREAST CANCER FEMALE
     Dosage: 125 MG, 1X/DAY
     Route: 048
     Dates: start: 201712, end: 201712

REACTIONS (7)
  - Blood glucose increased [Recovering/Resolving]
  - Influenza [Unknown]
  - Bone pain [Unknown]
  - Malaise [Unknown]
  - Diarrhoea [Recovering/Resolving]
  - Blood pressure increased [Unknown]
  - Cystitis [Recovering/Resolving]

NARRATIVE: CASE EVENT DATE: 201712
